FAERS Safety Report 14246367 (Version 2)
Quarter: 2017Q4

REPORT INFORMATION
  Report Type: Spontaneous
  Country: US (occurrence: US)
  Receive Date: 20171204
  Receipt Date: 20171208
  Transmission Date: 20180321
  Serious: Yes (Hospitalization, Other)
  Sender: FDA-Public Use
  Company Number: US-TEVA-2017-US-828417

PATIENT
  Age: 27 Year
  Sex: Female
  Weight: 104 kg

DRUGS (10)
  1. LATUDA [Suspect]
     Active Substance: LURASIDONE HYDROCHLORIDE
     Route: 065
  2. TOPAMAX [Concomitant]
     Active Substance: TOPIRAMATE
  3. CLOZAPINE. [Suspect]
     Active Substance: CLOZAPINE
     Indication: SCHIZOAFFECTIVE DISORDER
  4. CLOZAPINE. [Suspect]
     Active Substance: CLOZAPINE
  5. DEPAKOTE [Concomitant]
     Active Substance: DIVALPROEX SODIUM
  6. TERBENDYL [Concomitant]
  7. CLOZAPINE. [Suspect]
     Active Substance: CLOZAPINE
  8. CLOZAPINE. [Suspect]
     Active Substance: CLOZAPINE
     Dates: start: 201609
  9. ONFI [Concomitant]
     Active Substance: CLOBAZAM
  10. ZOLOFT [Concomitant]
     Active Substance: SERTRALINE HYDROCHLORIDE

REACTIONS (6)
  - Convulsive threshold lowered [Unknown]
  - Hallucination [Not Recovered/Not Resolved]
  - Weight increased [Unknown]
  - Seizure [Not Recovered/Not Resolved]
  - Drug ineffective [Unknown]
  - Withdrawal syndrome [Recovered/Resolved]

NARRATIVE: CASE EVENT DATE: 201506
